FAERS Safety Report 9094233 (Version 1)
Quarter: 2013Q1

REPORT INFORMATION
  Report Type: Spontaneous
  Country: US (occurrence: US)
  Receive Date: 20130219
  Receipt Date: 20130219
  Transmission Date: 20140127
  Serious: Yes (Other)
  Sender: FDA-Public Use
  Company Number: US-BAYER-2013-018232

PATIENT
  Age: 39 Year
  Sex: Female

DRUGS (1)
  1. GADAVIST [Suspect]
     Indication: NUCLEAR MAGNETIC RESONANCE IMAGING BRAIN
     Dosage: 10 ML, ONCE
     Route: 042
     Dates: start: 20130208

REACTIONS (3)
  - Anaphylactic reaction [Recovered/Resolved]
  - Burning sensation [Recovered/Resolved]
  - Flushing [Recovered/Resolved]
